FAERS Safety Report 26098912 (Version 1)
Quarter: 2025Q4

REPORT INFORMATION
  Report Type: Spontaneous
  Country: CA (occurrence: CA)
  Receive Date: 20251127
  Receipt Date: 20251127
  Transmission Date: 20260118
  Serious: Yes (Hospitalization, Other)
  Sender: MERCK SHARP & DOHME LLC
  Company Number: CA-009507513-2351904

PATIENT
  Age: 7 Month
  Sex: Male
  Weight: 8 kg

DRUGS (2)
  1. MEASLES-MUMPS-RUBELLA VIRUS VACCINE [Suspect]
     Active Substance: MEASLES-MUMPS-RUBELLA VIRUS VACCINE
     Indication: Immunisation
     Dosage: DOSAGE FORM: LIQUID SUBCUTANEOUS
     Route: 058
  2. STERILE DILUENT (WATER) [Suspect]
     Active Substance: WATER
     Indication: Immunisation
     Route: 065

REACTIONS (6)
  - Vomiting projectile [Recovered/Resolved]
  - Haematochezia [Recovered/Resolved]
  - Hypophagia [Recovered/Resolved]
  - Intussusception [Recovered/Resolved]
  - Lethargy [Recovered/Resolved]
  - Pyrexia [Recovered/Resolved]
